FAERS Safety Report 20436173 (Version 6)
Quarter: 2023Q2

REPORT INFORMATION
  Report Type: Report from Study
  Country: US (occurrence: US)
  Receive Date: 20220207
  Receipt Date: 20230406
  Transmission Date: 20230722
  Serious: No
  Sender: FDA-Public Use
  Company Number: US-NOVARTISTESTPH-NVSC2022US025253

PATIENT
  Age: 2 Year
  Sex: Male

DRUGS (2)
  1. ILARIS [Suspect]
     Active Substance: CANAKINUMAB
     Indication: Pyrexia
     Dosage: 30 MG, QMO
     Route: 058
     Dates: start: 20211210
  2. ILARIS [Suspect]
     Active Substance: CANAKINUMAB
     Dosage: 100 MG, Q4W
     Route: 058
     Dates: start: 20211210

REACTIONS (2)
  - Pyrexia [Unknown]
  - Pharyngitis streptococcal [Unknown]

NARRATIVE: CASE EVENT DATE: 20220203
